FAERS Safety Report 7481866-8 (Version None)
Quarter: 2011Q2

REPORT INFORMATION
  Report Type: 
  Country: None (occurrence: None)
  Receive Date: 20110516
  Receipt Date: 20110406
  Transmission Date: 20111010
  Serious: Yes (Hospitalization, Other)
  Sender: FDA-Public Use
  Company Number: US-BAYER-201036685NA

PATIENT
  Age: 44 Year
  Sex: Female
  Weight: 59.864 kg

DRUGS (5)
  1. YASMIN [Suspect]
     Indication: PRODUCT USED FOR UNKNOWN INDICATION
     Dosage: UNK
     Route: 048
     Dates: start: 20060901, end: 20090601
  2. YAZ [Suspect]
     Indication: PRODUCT USED FOR UNKNOWN INDICATION
     Dosage: UNK
     Dates: start: 20060901, end: 20090601
  3. FEMCON FE [Concomitant]
     Dosage: UNK
     Dates: start: 20080101
  4. SIMVASTATIN [Concomitant]
     Indication: BLOOD CHOLESTEROL INCREASED
     Dosage: UNK
     Dates: start: 20080101
  5. IBUPROFEN [Concomitant]
     Dosage: UNK
     Dates: end: 20080101

REACTIONS (5)
  - MYOCARDIAL INFARCTION [None]
  - FATIGUE [None]
  - PALPITATIONS [None]
  - ASTHENIA [None]
  - DIZZINESS [None]
